FAERS Safety Report 7652627-1 (Version None)
Quarter: 2011Q3

REPORT INFORMATION
  Report Type: 
  Country: None (occurrence: None)
  Receive Date: 20110801
  Receipt Date: 20110801
  Transmission Date: 20111222
  Serious: Yes (Life-Threatening, Other)
  Sender: FDA-Public Use
  Company Number: None

PATIENT
  Sex: Male

DRUGS (1)
  1. ABSORDINE JR. [Suspect]
     Dosage: BACK PATCH
     Route: 062
     Dates: start: 20110706, end: 20110706

REACTIONS (2)
  - RESPIRATORY FAILURE [None]
  - COMA [None]
